FAERS Safety Report 16366359 (Version 1)
Quarter: 2019Q2

REPORT INFORMATION
  Report Type: Spontaneous
  Country: US (occurrence: US)
  Receive Date: 20190422
  Receipt Date: 20190422
  Transmission Date: 20190711
  Serious: Yes (Death)
  Sender: FDA-Public Use
  Company Number: None

PATIENT
  Age: 63 Year
  Sex: Male

DRUGS (11)
  1. ZOLPIDEM [Concomitant]
     Active Substance: ZOLPIDEM\ZOLPIDEM TARTRATE
  2. PRAVASTATIN. [Concomitant]
     Active Substance: PRAVASTATIN
  3. PRAVACHOL [Concomitant]
     Active Substance: PRAVASTATIN SODIUM
  4. GLIPIZIDE. [Concomitant]
     Active Substance: GLIPIZIDE
  5. LISINOPRIL. [Concomitant]
     Active Substance: LISINOPRIL
  6. AMLODIPINE [Concomitant]
     Active Substance: AMLODIPINE BESYLATE
  7. RANITIDINE. [Concomitant]
     Active Substance: RANITIDINE
  8. METFORMIN [Concomitant]
     Active Substance: METFORMIN HYDROCHLORIDE
  9. LANTUS [Concomitant]
     Active Substance: INSULIN GLARGINE
  10. MYCOPHENOLIC 360MG TABLETS [Suspect]
     Active Substance: MYCOPHENOLIC ACID
     Indication: END STAGE RENAL DISEASE
     Dosage: ?          OTHER FREQUENCY:EVERY 12 HOURS;?
     Route: 048
     Dates: start: 20190312
  11. MYCOPHENOLIC 360MG TABLETS [Suspect]
     Active Substance: MYCOPHENOLIC ACID
     Indication: RENAL TRANSPLANT
     Dosage: ?          OTHER FREQUENCY:EVERY 12 HOURS;?
     Route: 048
     Dates: start: 20190312

REACTIONS (1)
  - Death [None]

NARRATIVE: CASE EVENT DATE: 20190404
